FAERS Safety Report 7321075-6 (Version None)
Quarter: 2011Q1

REPORT INFORMATION
  Report Type: 
  Country: None (occurrence: None)
  Receive Date: 20110228
  Receipt Date: 20110215
  Transmission Date: 20110831
  Serious: Yes (Other)
  Sender: FDA-Public Use
  Company Number: US-BAYER-2011-015878

PATIENT
  Sex: Female
  Weight: 147 kg

DRUGS (3)
  1. ANTIHYPERTENSIVES [Concomitant]
  2. ASPIRIN [Suspect]
     Route: 048
  3. ASPIRIN [Concomitant]
     Dosage: UNK UNK, QD

REACTIONS (3)
  - PRODUCT QUALITY ISSUE [None]
  - DYSPNOEA [None]
  - TACHYPNOEA [None]
